FAERS Safety Report 25347845 (Version 1)
Quarter: 2025Q2

REPORT INFORMATION
  Report Type: Spontaneous
  Country: TW (occurrence: TW)
  Receive Date: 20250522
  Receipt Date: 20250522
  Transmission Date: 20250716
  Serious: Yes (Death, Other)
  Sender: MYLAN
  Company Number: TW-MYLANLABS-2025M1042550

PATIENT
  Age: 71 Year
  Sex: Male
  Weight: 60.7 kg

DRUGS (3)
  1. CELEBREX [Suspect]
     Active Substance: CELECOXIB
     Indication: Analgesic therapy
     Dosage: 200 MILLIGRAM, BID
     Dates: start: 20250219, end: 20250312
  2. COLISTIMETHATE SODIUM [Suspect]
     Active Substance: COLISTIMETHATE SODIUM
     Indication: Infection
     Dosage: 4000000 INTERNATIONAL UNIT, BID (COLISTIN BASE 66.8 MG, START DATE: 05-MAR-2025)
     Dates: end: 20250318
  3. CLINDAMYCIN [Suspect]
     Active Substance: CLINDAMYCIN
     Indication: Product used for unknown indication
     Dosage: UNK, Q6H (2A)
     Dates: start: 20250217, end: 20250219

REACTIONS (10)
  - Bandaemia [Fatal]
  - Drug hypersensitivity [Fatal]
  - Infection [Fatal]
  - Oedema peripheral [Fatal]
  - Sepsis [Fatal]
  - Acute kidney injury [Fatal]
  - Disseminated intravascular coagulation [Fatal]
  - Respiratory arrest [Fatal]
  - Cardiac arrest [Fatal]
  - Hypothermia [Fatal]

NARRATIVE: CASE EVENT DATE: 20250219
